FAERS Safety Report 5618354-7 (Version None)
Quarter: 2008Q1

REPORT INFORMATION
  Report Type: 
  Country: None (occurrence: None)
  Receive Date: 20080205
  Receipt Date: 20080205
  Transmission Date: 20080703
  Serious: Yes (Other)
  Sender: FDA-Public Use
  Company Number: None

PATIENT
  Age: 35 Year
  Sex: Female
  Weight: 56.6996 kg

DRUGS (1)
  1. PAXIL [Suspect]
     Indication: IRRITABLE BOWEL SYNDROME
     Dosage: 20MG  1 PER DAY
     Dates: start: 20020624, end: 20080204

REACTIONS (6)
  - ALCOHOLISM [None]
  - DIZZINESS [None]
  - DRUG DEPENDENCE [None]
  - HALLUCINATION [None]
  - NIGHT SWEATS [None]
  - NIGHTMARE [None]
